FAERS Safety Report 21994131 (Version 1)
Quarter: 2023Q1

REPORT INFORMATION
  Report Type: Spontaneous
  Country: US (occurrence: None)
  Receive Date: 20230214
  Receipt Date: 20230214
  Transmission Date: 20230418
  Serious: Yes (Death, Hospitalization)
  Sender: FDA-Public Use
  Company Number: None

PATIENT
  Age: 74 Year
  Sex: Male

DRUGS (1)
  1. ARTIFICIAL TEARS LUBRICANT EYE DROPS (CARBOXYMETHYLCELLULOSE SODIUM) [Suspect]
     Active Substance: CARBOXYMETHYLCELLULOSE SODIUM
     Route: 031
     Dates: start: 20220412, end: 20220914

REACTIONS (19)
  - Recalled product [None]
  - Recalled product administered [None]
  - Urinary retention [None]
  - Urinary incontinence [None]
  - Urine odour abnormal [None]
  - Urine analysis abnormal [None]
  - Pyrexia [None]
  - Decreased appetite [None]
  - Fluid intake reduced [None]
  - Dehydration [None]
  - Clostridium difficile colitis [None]
  - Cardiac failure [None]
  - Distributive shock [None]
  - Pseudomonas infection [None]
  - Multiple-drug resistance [None]
  - Pulmonary oedema [None]
  - Respiratory failure [None]
  - Syncope [None]
  - Myelodysplastic syndrome [None]

NARRATIVE: CASE EVENT DATE: 20220914
